FAERS Safety Report 9614965 (Version 3)
Quarter: 2013Q4

REPORT INFORMATION
  Report Type: Spontaneous
  Country: CZ (occurrence: CZ)
  Receive Date: 20131011
  Receipt Date: 20131118
  Transmission Date: 20140711
  Serious: Yes (Other)
  Sender: FDA-Public Use
  Company Number: CZ-NOVOPROD-388981

PATIENT
  Age: 70 Year
  Sex: Female
  Weight: 76 kg

DRUGS (5)
  1. ACTRAPID HM PENFILL [Suspect]
     Indication: DIABETES MELLITUS
     Dosage: 1- 1- 1(10J) (10J) (9J)
     Route: 058
     Dates: start: 201308
  2. INSULATARD [Concomitant]
     Dosage: 19-21 IU (0-0-1)
  3. ZOLOFT [Concomitant]
     Indication: DEPRESSION
     Dosage: 1-0-1
  4. ASPIRIN [Concomitant]
     Dosage: 1-0-1
  5. TRAMAL [Concomitant]
     Indication: BONE PAIN
     Dosage: 150 MG, BID (2-0-0)

REACTIONS (4)
  - Body temperature increased [Unknown]
  - Dizziness [Not Recovered/Not Resolved]
  - Nausea [Not Recovered/Not Resolved]
  - Musculoskeletal stiffness [Not Recovered/Not Resolved]
